FAERS Safety Report 6188140-0 (Version None)
Quarter: 2009Q2

REPORT INFORMATION
  Report Type: 
  Country: None (occurrence: None)
  Receive Date: 20090513
  Receipt Date: 20080411
  Transmission Date: 20091009
  Serious: No
  Sender: FDA-Public Use
  Company Number: A0722594A

PATIENT
  Age: 87 Year
  Sex: Female

DRUGS (5)
  1. DYNACIRC CR [Suspect]
     Indication: HYPERTENSION
     Dosage: 5MG PER DAY
     Route: 048
     Dates: start: 20071201, end: 20080101
  2. ATENOLOL [Concomitant]
  3. COUMADIN [Concomitant]
  4. BENICAR [Concomitant]
  5. WATER PILL [Concomitant]

REACTIONS (11)
  - ANOREXIA [None]
  - ASTHENIA [None]
  - CONSTIPATION [None]
  - DIZZINESS [None]
  - GAIT DISTURBANCE [None]
  - HEADACHE [None]
  - HEART RATE INCREASED [None]
  - INSOMNIA [None]
  - MALAISE [None]
  - NAUSEA [None]
  - PRESYNCOPE [None]
